FAERS Safety Report 4391747-4 (Version None)
Quarter: 2004Q3

REPORT INFORMATION
  Report Type: 
  Country: None (occurrence: None)
  Receive Date: 20040701
  Receipt Date: 20040628
  Transmission Date: 20050211
  Serious: Yes (Death)
  Sender: FDA-Public Use
  Company Number: MK200406-0039-1

PATIENT

DRUGS (1)
  1. OPTIRAY 320 [Suspect]
     Dosage: IV, ONCE
     Route: 042
     Dates: start: 20040604, end: 20040604

REACTIONS (4)
  - DRUG EXPOSURE DURING PREGNANCY [None]
  - INTRA-UTERINE DEATH [None]
  - ROAD TRAFFIC ACCIDENT [None]
  - SPLENIC INJURY [None]
